FAERS Safety Report 8859046 (Version 2)
Quarter: 2013Q2

REPORT INFORMATION
  Report Type: Spontaneous
  Country: US (occurrence: US)
  Receive Date: 20121024
  Receipt Date: 20130401
  Transmission Date: 20140414
  Serious: Yes (Hospitalization)
  Sender: FDA-Public Use
  Company Number: US-BAYER-2012-110137

PATIENT
  Age: 19 Year
  Sex: Female

DRUGS (20)
  1. YASMIN [Suspect]
  2. YAZ [Suspect]
  3. LOVENOX [Concomitant]
     Indication: PULMONARY EMBOLISM
     Dosage: 90 MG, BID
  4. LOVENOX [Concomitant]
     Indication: DEEP VEIN THROMBOSIS
     Dosage: 100 MG, BID
  5. FLONASE [Concomitant]
  6. CLARITIN [Concomitant]
     Dosage: 10 MG, UNK
  7. SINGULAIR [Concomitant]
     Dosage: 10 MG, UNK
  8. GUAIFENESIN W/PSEUDOEPHEDRINE [Concomitant]
  9. MULTIVITAMIN [Concomitant]
  10. NAPROXEN [Concomitant]
     Dosage: 500 MG, BID
  11. PERCOCET [Concomitant]
     Dosage: 5/325MG ; EVERY 6 TO 4 HOURS
     Route: 048
  12. DIPHENHYDRAMINE [Concomitant]
     Dosage: 50 MG/ML, UNK
  13. PROMETHAZINE [Concomitant]
     Dosage: 25 MG/ML, UNK
  14. KETOROLAC [Concomitant]
     Dosage: 30 MG/ML, UNK
  15. CEFAZOLIN [Concomitant]
     Dosage: 1 G, UNK
  16. LIDOCAINE [Concomitant]
     Dosage: 1 %, UNK
  17. LACTATED RINGER^S [Concomitant]
     Dosage: UNK
     Route: 042
  18. DOCUSATE SODIUM [Concomitant]
     Dosage: 100 MG, UNK
  19. MORPHINE ER [Concomitant]
     Dosage: 15 MG, UNK
  20. IBUPROFEN [Concomitant]
     Dosage: 800 MG, UNK

REACTIONS (5)
  - Deep vein thrombosis [Recovered/Resolved]
  - Pulmonary embolism [Recovered/Resolved]
  - Injury [Recovered/Resolved]
  - Pain [None]
  - Pain [Recovered/Resolved]
